FAERS Safety Report 6634415-8 (Version None)
Quarter: 2010Q1

REPORT INFORMATION
  Report Type: 
  Country: None (occurrence: None)
  Receive Date: 20100315
  Receipt Date: 20100302
  Transmission Date: 20100710
  Serious: Yes (Other)
  Sender: FDA-Public Use
  Company Number: BE-ROCHE-688226

PATIENT
  Sex: Male
  Weight: 70 kg

DRUGS (3)
  1. XELODA [Suspect]
     Dosage: TDD: 2000/MG
     Route: 065
     Dates: start: 20091026, end: 20091221
  2. BEVACIZUMAB [Suspect]
     Dosage: LAST DOSE PRIOR TO SAE: 07 DEC 2009
     Route: 042
     Dates: start: 20091026, end: 20091224
  3. OXALIPLATIN [Concomitant]
     Dosage: TDD: 186/MG
     Dates: start: 20091026, end: 20091207

REACTIONS (1)
  - DRUG TOXICITY [None]
